FAERS Safety Report 5755242-X (Version None)
Quarter: 2008Q2

REPORT INFORMATION
  Report Type: 
  Country: None (occurrence: None)
  Receive Date: 20080529
  Receipt Date: 20080529
  Transmission Date: 20081010
  Serious: Yes (Hospitalization)
  Sender: FDA-Public Use
  Company Number: None

PATIENT
  Sex: Female
  Weight: 47.5 kg

DRUGS (2)
  1. BEVACIZUMAB [Suspect]
     Indication: RENAL CELL CARCINOMA
     Dosage: 713 MG Q/ 21 DAYS IV
     Route: 042
     Dates: start: 20080430
  2. BERTOZOMIB [Suspect]
     Dosage: 2.7 MG 1 AND 8 Q/21 IV
     Route: 042
     Dates: start: 20080430, end: 20080507

REACTIONS (2)
  - ABDOMINAL PAIN [None]
  - REFUSAL OF TREATMENT BY PATIENT [None]
